FAERS Safety Report 5984252-2 (Version None)
Quarter: 2008Q4

REPORT INFORMATION
  Report Type: 
  Country: None (occurrence: None)
  Receive Date: 20081205
  Receipt Date: 20081205
  Transmission Date: 20090506
  Serious: Yes (Other)
  Sender: FDA-Public Use
  Company Number: None

PATIENT
  Sex: Male
  Weight: 12.2471 kg

DRUGS (1)
  1. CEFDINIR [Suspect]
     Indication: STREPTOCOCCAL INFECTION
     Dosage: 6 ML ONCE A DAY PO
     Route: 048
     Dates: start: 20081122, end: 20081125

REACTIONS (1)
  - DRUG HYPERSENSITIVITY [None]
